FAERS Safety Report 4644593-8 (Version None)
Quarter: 2005Q2

REPORT INFORMATION
  Report Type: 
  Country: None (occurrence: None)
  Receive Date: 20050425
  Receipt Date: 20050425
  Transmission Date: 20051028
  Serious: Yes (Hospitalization)
  Sender: FDA-Public Use
  Company Number: None

PATIENT
  Age: 75 Year
  Sex: Female

DRUGS (3)
  1. TAXOL [Suspect]
     Indication: NON-SMALL CELL LUNG CANCER
     Dosage: 45 MG/M2 IV QW X 5
     Route: 042
     Dates: start: 20050307, end: 20050409
  2. CARBOPLATIN [Suspect]
     Indication: NON-SMALL CELL LUNG CANCER
     Dosage: AUC=2 IV QW X 5
     Route: 042
     Dates: start: 20050307, end: 20050409
  3. IRESSA [Suspect]
     Dosage: 250MG PO QD
     Route: 048

REACTIONS (9)
  - DIARRHOEA [None]
  - DRUG INTOLERANCE [None]
  - DYSPEPSIA [None]
  - FUNGAL OESOPHAGITIS [None]
  - GASTROOESOPHAGEAL REFLUX DISEASE [None]
  - OESOPHAGEAL STENOSIS [None]
  - OESOPHAGITIS [None]
  - PAIN [None]
  - RADIATION OESOPHAGITIS [None]
